FAERS Safety Report 7259277-X (Version None)
Quarter: 2011Q1

REPORT INFORMATION
  Report Type: 
  Country: None (occurrence: None)
  Receive Date: 20110129
  Receipt Date: 20100726
  Transmission Date: 20110831
  Serious: No
  Sender: FDA-Public Use
  Company Number: US-ABBOTT-10P-163-0660831-00

PATIENT
  Sex: Female
  Weight: 98.518 kg

DRUGS (4)
  1. FOLIC ACID [Concomitant]
     Indication: PRODUCT USED FOR UNKNOWN INDICATION
  2. METHOTREXATE [Concomitant]
     Indication: RHEUMATOID ARTHRITIS
     Dosage: 2.5MG 4 TABLETS WEEKLY
  3. HUMIRA [Suspect]
     Indication: RHEUMATOID ARTHRITIS
     Dates: start: 20050101, end: 20100601
  4. HUMIRA [Suspect]
     Dates: start: 20100601

REACTIONS (4)
  - INJECTION SITE PAIN [None]
  - OEDEMA PERIPHERAL [None]
  - BONE PAIN [None]
  - MUSCULAR WEAKNESS [None]
